FAERS Safety Report 4273168-8 (Version None)
Quarter: 2004Q1

REPORT INFORMATION
  Report Type: 
  Country: None (occurrence: None)
  Receive Date: 20040116
  Receipt Date: 20020725
  Transmission Date: 20041129
  Serious: Yes (Hospitalization)
  Sender: FDA-Public Use
  Company Number: WAES 0207FRA00060B1

PATIENT
  Age: 15 Day
  Sex: Male

DRUGS (11)
  1. BROMAZEPAM [Suspect]
  2. DIDANOSINE [Suspect]
     Indication: HIV INFECTION
  3. FLUNITRAZEPAM [Suspect]
  4. CRIXIVAN [Suspect]
     Indication: HIV INFECTION
     Dates: start: 19970801, end: 19970801
  5. LAMIVUDINE [Suspect]
     Indication: HIV INFECTION
  6. LAMIVUDINE [Suspect]
     Indication: PROPHYLAXIS AGAINST HIV INFECTION
  7. NEVIRAPINE [Suspect]
     Indication: HIV INFECTION
  8. SAQUINAVIR MESYLATE [Suspect]
     Indication: HIV INFECTION
  9. STAVUDINE [Suspect]
     Indication: HIV INFECTION
  10. ZIDOVUDINE [Suspect]
     Indication: HIV INFECTION
  11. ZIDOVUDINE [Suspect]
     Indication: PROPHYLAXIS AGAINST HIV INFECTION

REACTIONS (7)
  - BLOOD LACTIC ACID INCREASED [None]
  - DEVELOPMENTAL DELAY [None]
  - EXPRESSIVE LANGUAGE DISORDER [None]
  - FEBRILE CONVULSION [None]
  - HYPERTRIGLYCERIDAEMIA [None]
  - MATERNAL DRUGS AFFECTING FOETUS [None]
  - RESTLESSNESS [None]
